FAERS Safety Report 16204357 (Version 6)
Quarter: 2021Q4

REPORT INFORMATION
  Report Type: Spontaneous
  Country: JP (occurrence: None)
  Receive Date: 20190416
  Receipt Date: 20211105
  Transmission Date: 20220303
  Serious: Yes (Life-Threatening, Hospitalization, Other)
  Sender: FDA-Public Use
  Company Number: 2019SE40032

PATIENT
  Age: 30426 Day
  Sex: Male
  Weight: 57 kg

DRUGS (9)
  1. TAGRISSO [Suspect]
     Active Substance: OSIMERTINIB
     Indication: Non-small cell lung cancer
     Route: 048
     Dates: start: 20180711, end: 20190305
  2. IRESSA [Suspect]
     Active Substance: GEFITINIB
     Indication: Lung adenocarcinoma
     Route: 048
     Dates: start: 20160212, end: 20180710
  3. IRESSA [Suspect]
     Active Substance: GEFITINIB
     Indication: Non-small cell lung cancer
     Route: 048
     Dates: start: 20160212, end: 20180710
  4. HERBESSER [Suspect]
     Active Substance: DILTIAZEM HYDROCHLORIDE
     Indication: Atrial fibrillation
     Route: 048
  5. DUTASTERIDE [Suspect]
     Active Substance: DUTASTERIDE
     Indication: Benign prostatic hyperplasia
     Route: 048
     Dates: start: 20161219
  6. NAFTOPIDIL [Concomitant]
     Active Substance: NAFTOPIDIL
     Indication: Benign prostatic hyperplasia
     Route: 048
     Dates: start: 20161219
  7. URSO [Concomitant]
     Active Substance: URSODIOL
     Route: 048
  8. HERBALS [Concomitant]
     Active Substance: HERBALS
     Indication: Back pain
     Route: 048
     Dates: start: 20170829, end: 20190305
  9. MEROPENEM [Concomitant]
     Active Substance: MEROPENEM

REACTIONS (6)
  - Acute respiratory distress syndrome [Recovering/Resolving]
  - Respiratory failure [Unknown]
  - Pneumonia aspiration [Recovering/Resolving]
  - Pulmonary toxicity [Recovering/Resolving]
  - Liver disorder [Unknown]
  - Pleural effusion [Unknown]

NARRATIVE: CASE EVENT DATE: 20190226
